FAERS Safety Report 21799685 (Version 1)
Quarter: 2022Q4

REPORT INFORMATION
  Report Type: Spontaneous
  Country: US (occurrence: None)
  Receive Date: 20221229
  Receipt Date: 20221229
  Transmission Date: 20230112
  Serious: Yes (Other)
  Sender: FDA-Public Use
  Company Number: None

PATIENT
  Age: 52 Year
  Sex: Female
  Weight: 79.5 kg

DRUGS (1)
  1. DEFINITY [Suspect]
     Active Substance: PERFLUTREN
     Indication: Cardiac disorder
     Dates: start: 20221221, end: 20221221

REACTIONS (10)
  - Feeling hot [None]
  - Flushing [None]
  - Dyspnoea [None]
  - Lip discolouration [None]
  - Erythema [None]
  - Speech disorder [None]
  - Feeling abnormal [None]
  - Dyspnoea [None]
  - Cough [None]
  - Immediate post-injection reaction [None]

NARRATIVE: CASE EVENT DATE: 20221221
